FAERS Safety Report 7165897-3 (Version None)
Quarter: 2010Q4

REPORT INFORMATION
  Report Type: 
  Country: None (occurrence: None)
  Receive Date: 20101216
  Receipt Date: 20101207
  Transmission Date: 20110411
  Serious: Yes (Hospitalization, Other)
  Sender: FDA-Public Use
  Company Number: US-BIOGENIDEC-2010BI040439

PATIENT
  Sex: Female
  Weight: 77 kg

DRUGS (2)
  1. TYSABRI [Suspect]
     Indication: MULTIPLE SCLEROSIS
     Route: 042
     Dates: start: 20090501, end: 20101108
  2. TYSABRI [Suspect]
     Indication: CROHN'S DISEASE
     Route: 042
     Dates: start: 20090501, end: 20101108

REACTIONS (10)
  - ANAPHYLACTIC SHOCK [None]
  - ARTHRITIS [None]
  - AUTOIMMUNE HEPATITIS [None]
  - CONVULSION [None]
  - DEMENTIA [None]
  - FIBROMYALGIA [None]
  - GASTRIC INFECTION [None]
  - HYPERSENSITIVITY [None]
  - MOBILITY DECREASED [None]
  - OVERGROWTH BACTERIAL [None]
